FAERS Safety Report 8373886-6 (Version None)
Quarter: 2012Q2

REPORT INFORMATION
  Report Type: 
  Country: None (occurrence: None)
  Receive Date: 20120517
  Receipt Date: 20120504
  Transmission Date: 20120825
  Serious: Yes (Other)
  Sender: FDA-Public Use
  Company Number: JP-2012-13934

PATIENT
  Age: 69 Year
  Sex: Male
  Weight: 63 kg

DRUGS (17)
  1. LANTUS (INSULINE GLARGINE) [Concomitant]
  2. ALDACTONE [Suspect]
     Indication: CARDIAC FAILURE
     Dosage: 25 MG MILLIGRAM(S), DAILY DOSE, ORAL
     Route: 048
     Dates: start: 20111226, end: 20120111
  3. LANDEL (EFONIDIPINE HYDROCHLORIDE) [Concomitant]
  4. ZITHROMAX [Concomitant]
  5. VERAPAMIL HYDROCHLORIDE [Concomitant]
  6. LASIX [Suspect]
     Indication: CARDIAC FAILURE
     Dosage: 40 MG MILLIGRAM(S), DAILY DOSE, ORAL
     Route: 048
     Dates: start: 20111226, end: 20120215
  7. ROCEPHIN [Concomitant]
  8. NOVOLOG [Concomitant]
  9. WARFARIN SODIUM [Concomitant]
  10. VERAPAMIL HYDROCHLORIDE [Concomitant]
  11. SAMSCA [Suspect]
     Indication: FLUID RETENTION
     Dosage: 15 MG MILLIGRAM(S), GAM, ORAL
     Route: 048
     Dates: start: 20111228, end: 20120127
  12. ADETPHOS (ADENOSINE TRIPHOSPHATE, DISODIUM SALT) [Concomitant]
  13. DIOVAN [Concomitant]
  14. NOVO HEPARIN (HEPARIN) [Concomitant]
  15. BISOPROLOL FUMARATE [Concomitant]
  16. HANP (CARPERITIDE) [Concomitant]
  17. ACTOS [Concomitant]

REACTIONS (4)
  - HYPERKALAEMIA [None]
  - RENAL IMPAIRMENT [None]
  - THIRST [None]
  - HYPERURICAEMIA [None]
